FAERS Safety Report 7125932-5 (Version None)
Quarter: 2010Q4

REPORT INFORMATION
  Report Type: 
  Country: None (occurrence: None)
  Receive Date: 20101112
  Receipt Date: 20101101
  Transmission Date: 20110411
  Serious: Yes (Hospitalization)
  Sender: FDA-Public Use
  Company Number: 2010MA004089

PATIENT
  Sex: Female

DRUGS (3)
  1. LIDOCAINE HCL [Suspect]
     Indication: RESUSCITATION
     Dosage: 1000 MG;X1;IV
     Route: 042
  2. CON MEDS [Concomitant]
  3. PREV MEDS [Concomitant]

REACTIONS (3)
  - ACCIDENTAL OVERDOSE [None]
  - COMA [None]
  - HYPOXIC-ISCHAEMIC ENCEPHALOPATHY [None]
